FAERS Safety Report 13113509 (Version 1)
Quarter: 2017Q1

REPORT INFORMATION
  Report Type: Spontaneous
  Country: US (occurrence: US)
  Receive Date: 20170113
  Receipt Date: 20170113
  Transmission Date: 20170428
  Serious: Yes (Hospitalization)
  Sender: FDA-Public Use
  Company Number: None

PATIENT
  Age: 70 Year
  Sex: Male
  Weight: 74.1 kg

DRUGS (1)
  1. WARFARIN [Suspect]
     Active Substance: WARFARIN
     Route: 048

REACTIONS (5)
  - Haematemesis [None]
  - Gastric haemorrhage [None]
  - Duodenitis [None]
  - International normalised ratio increased [None]
  - Erosive duodenitis [None]

NARRATIVE: CASE EVENT DATE: 20161010
